FAERS Safety Report 7381395-6 (Version None)
Quarter: 2011Q1

REPORT INFORMATION
  Report Type: 
  Country: None (occurrence: None)
  Receive Date: 20110321
  Receipt Date: 20110305
  Transmission Date: 20110831
  Serious: Yes (Hospitalization)
  Sender: FDA-Public Use
  Company Number: IPC201103-000203

PATIENT
  Age: 48 Year
  Sex: Male

DRUGS (2)
  1. HYDROXYCHLOROQUINE SULFATE [Suspect]
     Indication: SYSTEMIC LUPUS ERYTHEMATOSUS
     Dosage: 200 MG, ORAL; 100 MG PER DAY; 200 MG/DAY
     Route: 048
  2. HYDROXYCHLOROQUINE SULFATE [Suspect]
     Indication: SYSTEMIC LUPUS ERYTHEMATOSUS
     Dosage: 200 MG, ORAL; 100 MG PER DAY; 200 MG/DAY
     Route: 048
     Dates: start: 20100301

REACTIONS (3)
  - MYALGIA [None]
  - ANAPHYLACTIC REACTION [None]
  - ARTHRALGIA [None]
